FAERS Safety Report 7910180-9 (Version None)
Quarter: 2011Q4

REPORT INFORMATION
  Report Type: 
  Country: None (occurrence: None)
  Receive Date: 20111111
  Receipt Date: 20111110
  Transmission Date: 20120403
  Serious: Yes (Hospitalization)
  Sender: FDA-Public Use
  Company Number: IT-ROCHE-1010574

PATIENT
  Sex: Male
  Weight: 72 kg

DRUGS (5)
  1. FLUOROURACIL [Suspect]
     Indication: COLORECTAL CANCER METASTATIC
     Dosage: LAST DOSE PRIOR TO SAE: 04/OCT/2011
     Route: 042
     Dates: start: 20110929
  2. IRINOTECAN HYDROCHLORIDE [Suspect]
     Indication: COLORECTAL CANCER METASTATIC
     Dosage: LAST DOSE PRIRO TO SAE: 4/OCT/2011
     Route: 042
     Dates: start: 20110329
  3. AVASTIN [Suspect]
     Indication: COLORECTAL CANCER METASTATIC
     Dosage: LLAST DSOE PRIOR TO SAE: 4/OCT/2011
     Dates: start: 20110329
  4. OXALIPLATIN [Suspect]
     Indication: COLORECTAL CANCER METASTATIC
     Dosage: LAST DOSE PRIOR TO 4/OCT/2011
     Route: 042
     Dates: start: 20110329
  5. LEUCOVORIN CALCIUM [Suspect]
     Indication: COLORECTAL CANCER METASTATIC
     Dosage: LAST DOSE PRIOR TO SAE: 4/OCT/2011
     Route: 042
     Dates: start: 20110329

REACTIONS (1)
  - ACUTE PULMONARY OEDEMA [None]
